FAERS Safety Report 9629536 (Version 1)
Quarter: 2013Q4

REPORT INFORMATION
  Report Type: Spontaneous
  Country: JP (occurrence: JP)
  Receive Date: 20131017
  Receipt Date: 20131017
  Transmission Date: 20140711
  Serious: Yes (Other)
  Sender: FDA-Public Use
  Company Number: JP-009507513-1310JPN006250

PATIENT
  Age: 64 Year
  Sex: Female

DRUGS (5)
  1. DECADRON ELIXIR [Suspect]
     Indication: DERMATOMYOSITIS
     Dosage: 0.75 MG DAILY
     Route: 048
     Dates: start: 2013
  2. EXENATIDE [Suspect]
     Indication: DIABETES MELLITUS
     Dosage: 10 MICROGRAM DAILY
     Route: 058
     Dates: start: 201212, end: 2013
  3. PREDNISOLONE [Concomitant]
     Indication: DERMATOMYOSITIS
     Dosage: UNK
     Route: 048
     Dates: start: 1985, end: 2013
  4. INSULIN [Concomitant]
     Indication: DIABETES MELLITUS
     Dosage: UNK
     Route: 058
     Dates: start: 2005
  5. LIRAGLUTIDE [Concomitant]
     Dosage: UNK
     Route: 058
     Dates: start: 201110, end: 201212

REACTIONS (1)
  - Hypoglycaemia [Unknown]
